FAERS Safety Report 7960420-5 (Version None)
Quarter: 2011Q4

REPORT INFORMATION
  Report Type: 
  Country: None (occurrence: None)
  Receive Date: 20111206
  Receipt Date: 20111202
  Transmission Date: 20120403
  Serious: Yes (Hospitalization, Other)
  Sender: FDA-Public Use
  Company Number: CO-PFIZER INC-2011289191

PATIENT
  Age: 44 Year
  Sex: Male

DRUGS (1)
  1. RAPAMUNE [Suspect]
     Indication: PROPHYLAXIS AGAINST TRANSPLANT REJECTION
     Dosage: 3 MG, 1X/DAY
     Route: 048
     Dates: start: 20100622

REACTIONS (2)
  - RENAL DISORDER [None]
  - ANURIA [None]
